FAERS Safety Report 16075061 (Version 2)
Quarter: 2019Q2

REPORT INFORMATION
  Report Type: Spontaneous
  Country: US (occurrence: US)
  Receive Date: 20190315
  Receipt Date: 20190427
  Transmission Date: 20190711
  Serious: No
  Sender: FDA-Public Use
  Company Number: US-TEVA-2019-US-1023056

PATIENT
  Age: 60 Year
  Sex: Female

DRUGS (3)
  1. HYDROCORTISONE. [Concomitant]
     Active Substance: HYDROCORTISONE
  2. OLOPATADINE EYE DROPS [Suspect]
     Active Substance: OLOPATADINE
     Indication: PRURITUS
     Dates: start: 201806
  3. ELEDEL [Concomitant]

REACTIONS (4)
  - Erythema [Unknown]
  - Blepharitis [Unknown]
  - Dermatitis contact [Recovered/Resolved with Sequelae]
  - Product substitution issue [Unknown]

NARRATIVE: CASE EVENT DATE: 20140228
